FAERS Safety Report 9413538 (Version 1)
Quarter: 2013Q2

REPORT INFORMATION
  Report Type: Spontaneous
  Country: TR (occurrence: None)
  Receive Date: 20130610
  Receipt Date: 20130610
  Transmission Date: 20140414
  Serious: Yes (Hospitalization, Other)
  Sender: FDA-Public Use
  Company Number: 221754

PATIENT
  Sex: Male
  Weight: 1.7 kg

DRUGS (3)
  1. TINZAPARIN [Suspect]
     Indication: THROMBOSIS PROPHYLAXIS
  2. ILOPROST [Suspect]
     Indication: PULMONARY ARTERIAL HYPERTENSION
     Dosage: 10-20 MCG 7-9 TIMES DAILY
  3. SILDENAFIL (SILDENAFIL) [Suspect]
     Indication: PULMONARY ARTERIAL HYPERTENSION
     Dosage: 10-20 MG 3 TIMES DAILY STARTED IN LOWEST DOSES AND GRADUALLY INCREASED TO TARGET THE MAXIMUM TOLERATED DOSE (3 IN 1 D)
     Route: 048

REACTIONS (6)
  - Maternal drugs affecting foetus [None]
  - Caesarean section [None]
  - Sinus tachycardia [None]
  - Premature baby [None]
  - Neonatal respiratory distress syndrome [None]
  - Bronchopulmonary dysplasia [None]
